FAERS Safety Report 6190090-0 (Version None)
Quarter: 2009Q2

REPORT INFORMATION
  Report Type: 
  Country: None (occurrence: None)
  Receive Date: 20090514
  Receipt Date: 20090506
  Transmission Date: 20091009
  Serious: Yes (Other)
  Sender: FDA-Public Use
  Company Number: PHHO2009GB05728

PATIENT
  Sex: Female

DRUGS (3)
  1. ZOLEDRONIC ACID [Suspect]
     Indication: METASTASES TO BONE
     Dosage: 4 MG
     Route: 042
     Dates: start: 20050914
  2. VITAMIN D [Concomitant]
     Indication: METASTASES TO BONE
  3. CALCIUM [Concomitant]
     Indication: METASTASES TO BONE

REACTIONS (1)
  - OSTEONECROSIS [None]
